FAERS Safety Report 7568344-2 (Version None)
Quarter: 2011Q2

REPORT INFORMATION
  Report Type: 
  Country: None (occurrence: None)
  Receive Date: 20110623
  Receipt Date: 20110615
  Transmission Date: 20111010
  Serious: Yes (Death)
  Sender: FDA-Public Use
  Company Number: A0931627A

PATIENT
  Age: 56 Year
  Sex: Female

DRUGS (8)
  1. COLACE [Concomitant]
  2. TYLENOL W/ CODEINE [Concomitant]
  3. ZESTORETIC [Concomitant]
  4. ADVAIR DISKUS 100/50 [Suspect]
     Indication: CHRONIC OBSTRUCTIVE PULMONARY DISEASE
     Dosage: 1PUFF TWICE PER DAY
     Route: 055
     Dates: start: 20101001, end: 20110521
  5. FLEXERIL [Concomitant]
  6. PRILOSEC [Concomitant]
  7. ALBUTEROL SULFATE AUTOHALER [Concomitant]
  8. IMITREX [Suspect]
     Indication: MIGRAINE
     Dosage: 25MG AS REQUIRED
     Route: 048
     Dates: start: 20101202, end: 20110521

REACTIONS (1)
  - DEATH [None]
